FAERS Safety Report 17169984 (Version 2)
Quarter: 2019Q4

REPORT INFORMATION
  Report Type: Spontaneous
  Country: JP (occurrence: BR)
  Receive Date: 20191218
  Receipt Date: 20191219
  Transmission Date: 20200122
  Serious: No
  Sender: FDA-Public Use
  Company Number: JP-SUNOVION-2019SUN005473

PATIENT
  Age: 23 Year
  Sex: Female

DRUGS (1)
  1. LATUDA [Suspect]
     Active Substance: LURASIDONE HYDROCHLORIDE
     Indication: BIPOLAR DISORDER
     Dosage: 1 DF, QD
     Route: 048
     Dates: start: 201808

REACTIONS (3)
  - Bipolar disorder [Unknown]
  - Candida infection [Not Recovered/Not Resolved]
  - Contraindicated product prescribed [Recovered/Resolved]

NARRATIVE: CASE EVENT DATE: 201911
